FAERS Safety Report 17694098 (Version 1)
Quarter: 2020Q2

REPORT INFORMATION
  Report Type: Spontaneous
  Country: US (occurrence: US)
  Receive Date: 20200422
  Receipt Date: 20200422
  Transmission Date: 20200714
  Serious: No
  Sender: FDA-Public Use
  Company Number: US-JNJFOC-20200407364

PATIENT

DRUGS (1)
  1. ZYRTEC [Suspect]
     Active Substance: CETIRIZINE HYDROCHLORIDE
     Indication: PRODUCT USED FOR UNKNOWN INDICATION
     Dosage: STARTED WITH UNSPECIFIED DOSE THEN DECREASED TO 1/2 PILL THEN 1/4 PILL
     Route: 065

REACTIONS (2)
  - Withdrawal syndrome [Unknown]
  - Incorrect dose administered [Unknown]
